FAERS Safety Report 6459978-7 (Version None)
Quarter: 2009Q4

REPORT INFORMATION
  Report Type: 
  Country: None (occurrence: None)
  Receive Date: 20091129
  Receipt Date: 20091117
  Transmission Date: 20100525
  Serious: Yes (Other)
  Sender: FDA-Public Use
  Company Number: PHEH2009US16059

PATIENT
  Sex: Male

DRUGS (3)
  1. RECLAST [Suspect]
     Dosage: UNK
     Dates: start: 20080505
  2. RECLAST [Suspect]
     Dosage: UNK
     Dates: start: 20090602
  3. REGLAN [Concomitant]

REACTIONS (2)
  - JOINT DISLOCATION [None]
  - PAIN IN JAW [None]
